FAERS Safety Report 18180877 (Version 1)
Quarter: 2020Q3

REPORT INFORMATION
  Report Type: Spontaneous
  Country: US (occurrence: US)
  Receive Date: 20200821
  Receipt Date: 20200821
  Transmission Date: 20201103
  Serious: Yes (Other)
  Sender: FDA-Public Use
  Company Number: None

PATIENT
  Age: 36 Year
  Sex: Male
  Weight: 61.65 kg

DRUGS (1)
  1. PHENYTOIN. [Suspect]
     Active Substance: PHENYTOIN
     Indication: SEIZURE
     Route: 048
     Dates: start: 20110301, end: 20110308

REACTIONS (3)
  - Product formulation issue [None]
  - Therapeutic response decreased [None]
  - Product substitution issue [None]

NARRATIVE: CASE EVENT DATE: 20110308
